FAERS Safety Report 7409648-3 (Version None)
Quarter: 2011Q2

REPORT INFORMATION
  Report Type: 
  Country: None (occurrence: None)
  Receive Date: 20110412
  Receipt Date: 20101029
  Transmission Date: 20111010
  Serious: Yes (Hospitalization, Other)
  Sender: FDA-Public Use
  Company Number: US-BAYER-201022996NA

PATIENT
  Sex: Female
  Weight: 79.365 kg

DRUGS (1)
  1. YAZ [Suspect]
     Indication: CONTRACEPTION
     Dosage: UNK UNK, UNK
     Route: 048
     Dates: start: 20080101, end: 20090401

REACTIONS (5)
  - CHOLECYSTITIS [None]
  - VOMITING [None]
  - ABDOMINAL PAIN UPPER [None]
  - GALLBLADDER INJURY [None]
  - NAUSEA [None]
